FAERS Safety Report 8183106-3 (Version None)
Quarter: 2012Q1

REPORT INFORMATION
  Report Type: 
  Country: None (occurrence: None)
  Receive Date: 20120126
  Receipt Date: 20111208
  Transmission Date: 20120608
  Serious: Yes (Other)
  Sender: FDA-Public Use
  Company Number: PHEH2011US011266

PATIENT
  Age: 71 Year
  Sex: Female
  Weight: 80.3 kg

DRUGS (11)
  1. AFINITOR [Suspect]
     Dosage: 1 DF, EVERY DAY, ORAL
     Route: 048
  2. FISH OIL (FISH OIL) [Concomitant]
  3. GLUCOSAMINE W/CHONDROITIN (CHONDROITIN SULFATE, GLUCOSAMINE) [Concomitant]
  4. ACETAMINOPHEN [Concomitant]
  5. JANUVIA [Concomitant]
  6. ZOCOR [Concomitant]
  7. METOPROLOL TARTRATE [Concomitant]
  8. MULTI-VITAMINS [Concomitant]
  9. VITAMIN D [Concomitant]
  10. ASPIRIN [Concomitant]
  11. CALCIUM CARBONATE [Concomitant]

REACTIONS (8)
  - ONYCHOCLASIS [None]
  - URINARY TRACT INFECTION [None]
  - TYPE 2 DIABETES MELLITUS [None]
  - NAIL DISCOLOURATION [None]
  - HAIR TEXTURE ABNORMAL [None]
  - PRURITUS [None]
  - FATIGUE [None]
  - OEDEMA PERIPHERAL [None]
